FAERS Safety Report 22991417 (Version 6)
Quarter: 2024Q1

REPORT INFORMATION
  Report Type: Spontaneous
  Country: AU (occurrence: AU)
  Receive Date: 20230927
  Receipt Date: 20240220
  Transmission Date: 20240410
  Serious: Yes (Hospitalization, Other)
  Sender: FDA-Public Use
  Company Number: AU-MYLANLABS-2023M1101875

PATIENT
  Age: 64 Year
  Sex: Male

DRUGS (15)
  1. CLOZARIL [Suspect]
     Active Substance: CLOZAPINE
     Indication: Schizophrenia
     Dosage: 400 MILLIGRAM, (100 MG IN THE MORNING AND 300 MG AT NIGHT)
     Route: 065
     Dates: start: 2015
  2. CLOZARIL [Suspect]
     Active Substance: CLOZAPINE
     Dosage: 450 MILLIGRAM
     Route: 065
  3. CLOZARIL [Suspect]
     Active Substance: CLOZAPINE
     Dosage: 475 MILLIGRAM
     Route: 048
     Dates: start: 20060504, end: 20231013
  4. CLOZARIL [Suspect]
     Active Substance: CLOZAPINE
     Dosage: 400 MILLIGRAM
     Route: 065
     Dates: start: 2013
  5. CLOZARIL [Suspect]
     Active Substance: CLOZAPINE
     Dosage: 400 MILLIGRAM NOCTE
     Route: 065
     Dates: start: 2014
  6. CLOZARIL [Suspect]
     Active Substance: CLOZAPINE
     Dosage: 600 MILLIGRAM(200MG MANE, 400MG NOCTE)
     Route: 065
     Dates: start: 2016
  7. CLOZARIL [Suspect]
     Active Substance: CLOZAPINE
     Dosage: 500 MILLIGRAM(200MG MANE, 100MG MIDDAY, 200MG NOCTE)
     Route: 065
     Dates: start: 2018
  8. CLOZARIL [Suspect]
     Active Substance: CLOZAPINE
     Dosage: 25 MILLIGRAM(2 TABLET IN MORNING, 1 TABLET IN NIGHT)
     Route: 065
  9. CLOZARIL [Suspect]
     Active Substance: CLOZAPINE
     Dosage: 100 MILLIGRAM(4 TABLETS AT NIGHT)
     Route: 065
  10. VALPROATE [Suspect]
     Active Substance: VALPROIC ACID
     Indication: Product used for unknown indication
     Dosage: 500 MILLIGRAM, BID
     Route: 065
     Dates: end: 20231126
  11. VALPROATE [Suspect]
     Active Substance: VALPROIC ACID
     Dosage: 700 MILLIGRAM(200MG MANE,500MG NOCTE)
     Route: 065
     Dates: start: 2014
  12. OLANZAPINE [Concomitant]
     Active Substance: OLANZAPINE
     Dosage: UNK
     Route: 065
  13. OLANZAPINE [Concomitant]
     Active Substance: OLANZAPINE
     Dosage: 30 MILLIGRAM, HS (INCREASED)
     Route: 065
  14. OLANZAPINE [Concomitant]
     Active Substance: OLANZAPINE
     Dosage: 5 MILLIGRAM NOCTE
     Route: 065
     Dates: start: 2014
  15. DOCUSATE SODIUM\SENNOSIDE A\SENNOSIDE B [Concomitant]
     Active Substance: DOCUSATE SODIUM\SENNOSIDE A\SENNOSIDE B
     Indication: Constipation
     Dosage: TAJE 2 TABLETS TWICE A DAY
     Route: 065

REACTIONS (8)
  - Mental disorder [Not Recovered/Not Resolved]
  - Psychotic disorder [Unknown]
  - Schizophrenia [Unknown]
  - Thrombocytopenia [Unknown]
  - Neutrophil count decreased [Not Recovered/Not Resolved]
  - White blood cell count decreased [Not Recovered/Not Resolved]
  - Anaemia [Unknown]
  - Treatment noncompliance [Unknown]

NARRATIVE: CASE EVENT DATE: 20231016
